FAERS Safety Report 5209563-X (Version None)
Quarter: 2006Q4

REPORT INFORMATION
  Report Type: 
  Country: None (occurrence: None)
  Receive Date: 20061124
  Receipt Date: 20060314
  Transmission Date: 20070319
  Serious: Yes (Other)
  Sender: FDA-Public Use
  Company Number: 2006-BP-03042BP

PATIENT
  Sex: Male

DRUGS (3)
  1. AGGRENOX [Suspect]
     Indication: CEREBROVASCULAR ACCIDENT PROPHYLAXIS
     Dosage: (SEE TEXT, 25 MG/200 MG) PO
     Route: 048
  2. AGGRENOX [Suspect]
     Indication: PROPHYLAXIS
     Dosage: (SEE TEXT, 25 MG/200 MG) PO
     Route: 048
  3. AGGRENOX [Suspect]
     Indication: TRANSIENT ISCHAEMIC ATTACK
     Dosage: (SEE TEXT, 25 MG/200 MG) PO
     Route: 048

REACTIONS (1)
  - HAEMORRHAGE [None]
